FAERS Safety Report 8588069 (Version 2)
Quarter: 2012Q4

REPORT INFORMATION
  Report Type: 
  Country: US (occurrence: US)
  Receive Date: 20120531
  Receipt Date: 20121019
  Transmission Date: 20130627
  Serious: Yes (Disabling, Other)
  Sender: FDA-Public Use
  Company Number: US-BAYER-2012-053525

PATIENT
  Age: 41 None
  Sex: Female

DRUGS (2)
  1. CIPRO [Suspect]
     Indication: SINUSITIS BACTERIAL
     Dosage: 500 mg, BID
     Dates: start: 20120524, end: 20120525
  2. GENTAMYCIN [Concomitant]
     Route: 045

REACTIONS (13)
  - Arthralgia [None]
  - Arthralgia [None]
  - Tendon pain [None]
  - Arthralgia [None]
  - Pain in extremity [None]
  - Muscle strain [None]
  - Pain [None]
  - Arthralgia [Not Recovered/Not Resolved]
  - Condition aggravated [Not Recovered/Not Resolved]
  - Impaired work ability [Not Recovered/Not Resolved]
  - Activities of daily living impaired [Not Recovered/Not Resolved]
  - Mobility decreased [Not Recovered/Not Resolved]
  - Mobility decreased [Not Recovered/Not Resolved]
